FAERS Safety Report 5426291-6 (Version None)
Quarter: 2007Q3

REPORT INFORMATION
  Report Type: 
  Country: None (occurrence: None)
  Receive Date: 20070827
  Receipt Date: 20070815
  Transmission Date: 20080115
  Serious: Yes (Hospitalization)
  Sender: FDA-Public Use
  Company Number: PHBS2007US13881

PATIENT
  Age: 10 Year
  Sex: Male

DRUGS (2)
  1. METHYLPHENIDATE HCL [Suspect]
     Indication: ATTENTION DEFICIT/HYPERACTIVITY DISORDER
     Dosage: 10 MG, BID
  2. METHYLPHENIDATE HCL [Suspect]
     Dosage: 15 MG, BID

REACTIONS (6)
  - BURNING SENSATION [None]
  - FEELING ABNORMAL [None]
  - FORMICATION [None]
  - HALLUCINATION, TACTILE [None]
  - OBSESSIVE-COMPULSIVE DISORDER [None]
  - SOMATIC HALLUCINATION [None]
